FAERS Safety Report 5020107-8 (Version None)
Quarter: 2006Q2

REPORT INFORMATION
  Report Type: 
  Country: None (occurrence: None)
  Receive Date: 20060601
  Receipt Date: 20060524
  Transmission Date: 20061013
  Serious: Yes (Hospitalization)
  Sender: FDA-Public Use
  Company Number: DE-2005-026545

PATIENT
  Age: 33 Year
  Sex: Female

DRUGS (1)
  1. MIRENA [Suspect]
     Indication: ENDOMETRIOSIS
     Dosage: 20 UG/DAY, CONT, INTRA-UTERINE
     Route: 015
     Dates: start: 20051102

REACTIONS (9)
  - ABDOMINAL PAIN LOWER [None]
  - CIRCULATORY COLLAPSE [None]
  - DIZZINESS [None]
  - DRUG ABUSER [None]
  - MENORRHAGIA [None]
  - MENSTRUAL DISORDER [None]
  - METRORRHAGIA [None]
  - PROCEDURAL COMPLICATION [None]
  - PROCEDURAL PAIN [None]
